FAERS Safety Report 5940013-1 (Version None)
Quarter: 2008Q4

REPORT INFORMATION
  Report Type: 
  Country: None (occurrence: None)
  Receive Date: 20081104
  Receipt Date: 20081021
  Transmission Date: 20090506
  Serious: No
  Sender: FDA-Public Use
  Company Number: US-BAYER-200814160BCC

PATIENT
  Sex: Female

DRUGS (5)
  1. ALEVE [Suspect]
     Indication: ARTHRALGIA
     Dosage: UNIT DOSE: 220 MG
     Dates: start: 20081001
  2. ALEVE [Suspect]
     Indication: ARTHRALGIA
     Route: 048
  3. VICODIN [Concomitant]
  4. EXFORGE [Concomitant]
  5. AMBIEN [Concomitant]

REACTIONS (1)
  - ABDOMINAL PAIN UPPER [None]
